FAERS Safety Report 5490453-2 (Version None)
Quarter: 2007Q4

REPORT INFORMATION
  Report Type: 
  Country: None (occurrence: None)
  Receive Date: 20071017
  Receipt Date: 20071017
  Transmission Date: 20080405
  Serious: Yes (Hospitalization)
  Sender: FDA-Public Use
  Company Number: None

PATIENT
  Sex: Female
  Weight: 57.5 kg

DRUGS (6)
  1. CYTARABINE [Suspect]
     Dosage: 70 MG
  2. DAUNORUBICIN HCL [Suspect]
     Dosage: 40 MG
  3. DEXAMETHASONE 0.5MG TAB [Suspect]
     Dosage: 120 MG
  4. METHOTREXATE [Suspect]
     Dosage: 15 MG
  5. PEG-L-ASPARAGINASE (K-H) [Suspect]
     Dosage: 4025 UNIT
  6. VINCRISTINE SULFATE [Suspect]
     Dosage: 2 MG

REACTIONS (9)
  - DIALYSIS [None]
  - KLEBSIELLA INFECTION [None]
  - LOWER RESPIRATORY TRACT INFECTION FUNGAL [None]
  - NECROTISING FASCIITIS [None]
  - NERVOUS SYSTEM DISORDER [None]
  - NEUTROPENIA [None]
  - RENAL FAILURE [None]
  - SEPTIC SHOCK [None]
  - STAPHYLOCOCCAL INFECTION [None]
